FAERS Safety Report 8621652-6 (Version None)
Quarter: 2012Q3

REPORT INFORMATION
  Report Type: 
  Country: None (occurrence: None)
  Receive Date: 20120820
  Receipt Date: 20120820
  Transmission Date: 20120928
  Serious: Yes (Other)
  Sender: FDA-Public Use
  Company Number: None

PATIENT
  Age: 28 Year
  Sex: Male
  Weight: 90.7194 kg

DRUGS (1)
  1. LORAZEPAM [Suspect]
     Dosage: 2MG 2X A XAY, EVERYDAY, PO
     Route: 048
     Dates: start: 20090607, end: 20120807

REACTIONS (1)
  - DRUG INEFFECTIVE [None]
